FAERS Safety Report 23041457 (Version 1)
Quarter: 2023Q4

REPORT INFORMATION
  Report Type: Spontaneous
  Country: US (occurrence: US)
  Receive Date: 20231007
  Receipt Date: 20231007
  Transmission Date: 20240110
  Serious: No
  Sender: FDA-Public Use
  Company Number: US-UNITED THERAPEUTICS-UNT-2023-021085

PATIENT
  Age: 13 Year
  Sex: Female

DRUGS (3)
  1. REMODULIN [Suspect]
     Active Substance: TREPROSTINIL
     Indication: Pulmonary arterial hypertension
     Dosage: 0.0998 ?G/KG, CONTINUING
     Route: 058
  2. REMODULIN [Suspect]
     Active Substance: TREPROSTINIL
     Dosage: UNK, CONTINUING
     Route: 058
     Dates: start: 202204
  3. TRIAMCINOLONE [Suspect]
     Active Substance: TRIAMCINOLONE
     Indication: Infusion site pruritus
     Dosage: UNK
     Route: 065

REACTIONS (10)
  - Infusion site pruritus [Unknown]
  - Infusion site scab [Unknown]
  - Device power source issue [Recovered/Resolved]
  - Device maintenance issue [Unknown]
  - Therapy partial responder [Unknown]
  - Device dislocation [Unknown]
  - Infusion site rash [Unknown]
  - Infusion site infection [Unknown]
  - Infusion site pain [Unknown]
  - Infusion site reaction [Unknown]

NARRATIVE: CASE EVENT DATE: 20230701
